FAERS Safety Report 18621664 (Version 2)
Quarter: 2021Q1

REPORT INFORMATION
  Report Type: Spontaneous
  Country: JP (occurrence: JP)
  Receive Date: 20201215
  Receipt Date: 20210107
  Transmission Date: 20210419
  Serious: Yes (Death)
  Sender: FDA-Public Use
  Company Number: JP-BAXTER-2020BAX025503

PATIENT
  Age: 62 Year
  Sex: Female
  Weight: 53 kg

DRUGS (3)
  1. DOXIL [Suspect]
     Active Substance: DOXORUBICIN HYDROCHLORIDE
     Indication: ANGIOSARCOMA
     Route: 042
  2. YONDELIS [Concomitant]
     Active Substance: TRABECTEDIN
     Indication: ANGIOSARCOMA
     Dosage: 0.0571 MG/M2
     Route: 041
  3. PAZOPANIB HYDROCHLORIDE [Concomitant]
     Active Substance: PAZOPANIB HYDROCHLORIDE
     Indication: ANGIOSARCOMA
     Route: 048

REACTIONS (1)
  - Putamen haemorrhage [Fatal]
